FAERS Safety Report 25110905 (Version 1)
Quarter: 2025Q1

REPORT INFORMATION
  Report Type: Report from Study
  Country: DE (occurrence: DE)
  Receive Date: 20250324
  Receipt Date: 20250324
  Transmission Date: 20250409
  Serious: Yes (Other)
  Sender: ALEXION PHARMACEUTICALS
  Company Number: DE-ASTRAZENECA-202503GLO014113DE

PATIENT
  Age: 63 Year
  Weight: 145 kg

DRUGS (2)
  1. DURVALUMAB [Suspect]
     Active Substance: DURVALUMAB
     Indication: Hepatocellular carcinoma
  2. DURVALUMAB [Suspect]
     Active Substance: DURVALUMAB

REACTIONS (1)
  - Leukopenia [Recovered/Resolved]
